FAERS Safety Report 25842629 (Version 1)
Quarter: 2025Q3

REPORT INFORMATION
  Report Type: Spontaneous
  Country: US (occurrence: US)
  Receive Date: 20250924
  Receipt Date: 20250924
  Transmission Date: 20251021
  Serious: No
  Sender: DR REDDYS
  Company Number: US-DRL-USA-USA/2025/09/014220

PATIENT
  Age: 71 Year
  Sex: Female

DRUGS (1)
  1. CINACALCET [Suspect]
     Active Substance: CINACALCET
     Indication: Hypercalcaemia of malignancy
     Dosage: 30 MG DAILY WAS STARTED WITH GRADUAL INCREASE IN DOSE

REACTIONS (2)
  - Vomiting [Unknown]
  - Nausea [Unknown]
